FAERS Safety Report 15065478 (Version 1)
Quarter: 2018Q2

REPORT INFORMATION
  Report Type: Other
  Country: DE (occurrence: DE)
  Receive Date: 20180626
  Receipt Date: 20180626
  Transmission Date: 20180711
  Serious: No
  Sender: FDA-Public Use
  Company Number: DE-LUPIN PHARMACEUTICALS INC.-2017-03651

PATIENT

DRUGS (5)
  1. SIMVASTATIN. [Suspect]
     Active Substance: SIMVASTATIN
     Indication: LIPID METABOLISM DISORDER
     Dosage: UNK
     Route: 048
  2. FORADIL [Concomitant]
     Active Substance: FORMOTEROL FUMARATE
     Indication: ASTHMA
     Dosage: INGESTION FOR YEARS
     Route: 055
  3. ALFUZOSIN [Suspect]
     Active Substance: ALFUZOSIN
     Indication: URINARY RETENTION
     Route: 048
  4. SANASTHMAX [Concomitant]
     Indication: ASTHMA
     Dosage: INGESTION FOR YEARS
     Route: 055
  5. CLOPIDOGREL [Concomitant]
     Active Substance: CLOPIDOGREL BISULFATE
     Indication: ANTICOAGULANT THERAPY
     Dosage: INGESTION FOR YEARS
     Route: 048

REACTIONS (1)
  - Symmetrical drug-related intertriginous and flexural exanthema [Recovered/Resolved]

NARRATIVE: CASE EVENT DATE: 201605
